FAERS Safety Report 22242984 (Version 1)
Quarter: 2023Q2

REPORT INFORMATION
  Report Type: Report from Study
  Country: FR (occurrence: FR)
  Receive Date: 20230424
  Receipt Date: 20230424
  Transmission Date: 20230722
  Serious: Yes (Other)
  Sender: FDA-Public Use
  Company Number: FR-PFIZER INC-202300162043

PATIENT
  Sex: Male

DRUGS (2)
  1. PAXLOVID [Interacting]
     Active Substance: NIRMATRELVIR\RITONAVIR
     Indication: COVID-19 treatment
     Dosage: UNK
     Route: 048
  2. HEPARIN CALCIUM [Interacting]
     Active Substance: HEPARIN CALCIUM
     Dosage: UNK

REACTIONS (2)
  - Drug interaction [Unknown]
  - Haematoma muscle [Unknown]
